FAERS Safety Report 6610311-7 (Version None)
Quarter: 2010Q1

REPORT INFORMATION
  Report Type: 
  Country: None (occurrence: None)
  Receive Date: 20100302
  Receipt Date: 20100216
  Transmission Date: 20100710
  Serious: Yes (Other)
  Sender: FDA-Public Use
  Company Number: PHHY2010JP10207

PATIENT

DRUGS (2)
  1. ZOMETA [Suspect]
     Dosage: UNK
     Route: 042
  2. PURSENNID (NCH) [Suspect]
     Route: 048

REACTIONS (1)
  - LIVER DISORDER [None]
